FAERS Safety Report 8313752-5 (Version None)
Quarter: 2012Q2

REPORT INFORMATION
  Report Type: 
  Country: None (occurrence: None)
  Receive Date: 20120426
  Receipt Date: 20110808
  Transmission Date: 20120825
  Serious: Yes (Other)
  Sender: FDA-Public Use
  Company Number: US-TEVA-US019843

PATIENT
  Sex: Male
  Weight: 82 kg

DRUGS (4)
  1. SYNTHROID [Suspect]
     Indication: THYROID DISORDER
     Dosage: .137 MILLIGRAM;
     Route: 048
     Dates: start: 19840701
  2. REBIF [Concomitant]
     Indication: MULTIPLE SCLEROSIS
     Route: 030
     Dates: start: 20050901
  3. PROVIGIL [Suspect]
     Indication: FATIGUE
     Dosage: 200 MILLIGRAM;
     Route: 048
     Dates: start: 20050101
  4. LIPITOR [Suspect]
     Indication: HYPERCHOLESTEROLAEMIA
     Dosage: 20 MILLIGRAM;
     Route: 048
     Dates: start: 19990101

REACTIONS (3)
  - LIMB DISCOMFORT [None]
  - HYPERTENSION [None]
  - DRUG INTERACTION [None]
